FAERS Safety Report 6861464-7 (Version None)
Quarter: 2010Q3

REPORT INFORMATION
  Report Type: 
  Country: None (occurrence: None)
  Receive Date: 20100720
  Receipt Date: 20100712
  Transmission Date: 20110219
  Serious: Yes (Other)
  Sender: FDA-Public Use
  Company Number: CA-AMGEN-QUU423747

PATIENT
  Sex: Male

DRUGS (10)
  1. ENBREL [Suspect]
     Indication: RHEUMATOID ARTHRITIS
     Route: 058
     Dates: start: 20031005
  2. MOMETASONE FUROATE [Concomitant]
  3. RABEPRAZOLE SODIUM [Concomitant]
  4. ALLOPURINOL [Concomitant]
  5. METHOTREXATE SODIUM [Concomitant]
  6. TELMISARTAN/HYDROCHLOROTHIAZIDE [Concomitant]
  7. PREDNISONE [Concomitant]
  8. PROPOXYPHENE HCL [Concomitant]
  9. CALCITONIN [Concomitant]
  10. REMICADE [Concomitant]
     Dates: end: 20100501

REACTIONS (2)
  - DEEP VEIN THROMBOSIS [None]
  - FALL [None]
